FAERS Safety Report 9491339 (Version 1)
Quarter: 2013Q3

REPORT INFORMATION
  Report Type: Spontaneous
  Country: US (occurrence: None)
  Receive Date: 20130827
  Receipt Date: 20130827
  Transmission Date: 20140515
  Serious: Yes (Hospitalization)
  Sender: FDA-Public Use
  Company Number: DSU-2013-04374

PATIENT
  Age: 70 Year
  Sex: Female
  Weight: 120.2 kg

DRUGS (1)
  1. BENICAR HCT [Suspect]
     Indication: HYPERTENSION
     Route: 048
     Dates: start: 2005, end: 201308

REACTIONS (7)
  - Hypothyroidism [None]
  - Pruritus [None]
  - Joint swelling [None]
  - Pain [None]
  - Weight decreased [None]
  - Self-medication [None]
  - Thyroid neoplasm [None]
